FAERS Safety Report 12860039 (Version 1)
Quarter: 2016Q4

REPORT INFORMATION
  Report Type: Spontaneous
  Country: AR (occurrence: AR)
  Receive Date: 20161019
  Receipt Date: 20161019
  Transmission Date: 20170207
  Serious: Yes (Other)
  Sender: FDA-Public Use
  Company Number: AR-AMGEN-ARGSP2016087414

PATIENT
  Age: 17 Year
  Sex: Female

DRUGS (2)
  1. ENBREL [Suspect]
     Active Substance: ETANERCEPT
     Dosage: 50 MG, WEEKLY
     Route: 065
     Dates: start: 20161006
  2. ENBREL [Suspect]
     Active Substance: ETANERCEPT
     Indication: JUVENILE IDIOPATHIC ARTHRITIS
     Dosage: 25 MG, 2X/WEEK
     Route: 065
     Dates: start: 20110107, end: 20160628

REACTIONS (1)
  - Abortion spontaneous [Unknown]

NARRATIVE: CASE EVENT DATE: 201608
